FAERS Safety Report 10606265 (Version 1)
Quarter: 2014Q4

REPORT INFORMATION
  Report Type: Spontaneous
  Country: GB (occurrence: None)
  Receive Date: 20141121
  Receipt Date: 20141121
  Transmission Date: 20150529
  Serious: Yes (Other)
  Sender: FDA-Public Use
  Company Number: FK201405345

PATIENT
  Sex: Male

DRUGS (1)
  1. VANCOMYCIN (MANUFACTURER UNKNOWN) (VANCOMYCIN) (VANCOMYCIN) [Suspect]
     Active Substance: VANCOMYCIN
     Indication: PRODUCT USED FOR UNKNOWN INDICATION
     Dates: start: 20141007, end: 20141007

REACTIONS (4)
  - Vomiting [None]
  - Contraindicated drug administered [None]
  - Angioedema [None]
  - Cold sweat [None]

NARRATIVE: CASE EVENT DATE: 20141007
